FAERS Safety Report 7090587-5 (Version None)
Quarter: 2010Q4

REPORT INFORMATION
  Report Type: 
  Country: None (occurrence: None)
  Receive Date: 20101109
  Receipt Date: 20080804
  Transmission Date: 20110411
  Serious: No
  Sender: FDA-Public Use
  Company Number: US-KINGPHARMUSA00001-K200800927

PATIENT
  Sex: Male

DRUGS (3)
  1. EPIPEN [Suspect]
     Indication: FOOD ALLERGY
     Dosage: .3 MG, SINGLE
     Dates: start: 20080802, end: 20080802
  2. HYDROCODONE BITARTRATE [Concomitant]
     Indication: BACK PAIN
  3. NEXIUM [Concomitant]
     Indication: GASTROOESOPHAGEAL REFLUX DISEASE
     Dosage: 40 MG, QD
     Route: 048

REACTIONS (5)
  - ACCIDENTAL EXPOSURE [None]
  - INJECTION SITE HAEMORRHAGE [None]
  - INJECTION SITE PAIN [None]
  - INJECTION SITE SWELLING [None]
  - SKELETAL INJURY [None]
